FAERS Safety Report 7221482-6 (Version None)
Quarter: 2011Q1

REPORT INFORMATION
  Report Type: 
  Country: None (occurrence: None)
  Receive Date: 20110112
  Receipt Date: 20101223
  Transmission Date: 20110831
  Serious: No
  Sender: FDA-Public Use
  Company Number: US-B.I. PHARMACEUTICALS,INC./RIDGEFIELD-2011-BP-00063BP

PATIENT
  Sex: Male

DRUGS (3)
  1. CARVEDILOL [Concomitant]
     Indication: HEART RATE IRREGULAR
     Dates: start: 20101216
  2. BENAZEPRIL HYDROCHLORIDE [Concomitant]
     Indication: HEART RATE IRREGULAR
     Dates: start: 20101216
  3. PRADAXA [Suspect]
     Indication: HEART RATE IRREGULAR
     Dosage: 300 MG
     Route: 048
     Dates: start: 20101216

REACTIONS (2)
  - SOMNOLENCE [None]
  - DYSPEPSIA [None]
